FAERS Safety Report 15227084 (Version 1)
Quarter: 2018Q3

REPORT INFORMATION
  Report Type: Spontaneous
  Country: US (occurrence: US)
  Receive Date: 20180706
  Receipt Date: 20180706
  Transmission Date: 20181010
  Serious: Yes (Hospitalization)
  Sender: FDA-Public Use
  Company Number: None

PATIENT
  Age: 59 Year
  Sex: Female

DRUGS (7)
  1. ENBREL [Suspect]
     Active Substance: ETANERCEPT
     Indication: RHEUMATOID ARTHRITIS
     Dosage: ?          OTHER FREQUENCY:ONCE A WEEK;?
     Route: 058
     Dates: start: 20171010
  2. OMEPRAZOLE. [Concomitant]
     Active Substance: OMEPRAZOLE
     Dates: start: 20100824
  3. HYDROCO/APAP [Concomitant]
     Active Substance: ACETAMINOPHEN\HYDROCODONE
     Dates: start: 20180628
  4. LEVOTHYROXIN [Concomitant]
     Active Substance: LEVOTHYROXINE
     Dates: start: 20180206
  5. ESOMEPRA MAG [Concomitant]
     Dates: start: 20170717
  6. CENTRUM [Concomitant]
     Active Substance: VITAMINS
     Dates: start: 20180705
  7. XARELTO [Concomitant]
     Active Substance: RIVAROXABAN
     Dates: start: 20180207

REACTIONS (4)
  - Tenoplasty [None]
  - Pain [None]
  - Joint range of motion decreased [None]
  - Arthritis [None]
